FAERS Safety Report 10993408 (Version 1)
Quarter: 2015Q1

REPORT INFORMATION
  Report Type: Spontaneous
  Country: US (occurrence: None)
  Receive Date: 20150331
  Receipt Date: 20150331
  Transmission Date: 20150721
  Serious: Yes (Other)
  Sender: FDA-Public Use
  Company Number: PHEH2014US006508

PATIENT
  Sex: Male

DRUGS (3)
  1. PRAVASTATIN SODIUM (PRAVASTATIN SODIUM) [Concomitant]
  2. TASIGNA [Suspect]
     Active Substance: NILOTINIB
  3. LISINOPRIL (LISINOPRIL) [Concomitant]
     Active Substance: LISINOPRIL

REACTIONS (1)
  - Type 2 diabetes mellitus [None]
